FAERS Safety Report 21163106 (Version 2)
Quarter: 2022Q3

REPORT INFORMATION
  Report Type: Spontaneous
  Country: US (occurrence: US)
  Receive Date: 20220802
  Receipt Date: 20220912
  Transmission Date: 20221026
  Serious: No
  Sender: FDA-Public Use
  Company Number: US-PFIZER INC-PV202200033249

PATIENT
  Age: 69 Year
  Sex: Female
  Weight: 75.75 kg

DRUGS (2)
  1. XELJANZ XR [Suspect]
     Active Substance: TOFACITINIB CITRATE
     Indication: Arthritis
     Dosage: 11 MG (TAKES ONE A DAY BY MOUTH )
     Route: 048
  2. XELJANZ [Suspect]
     Active Substance: TOFACITINIB CITRATE
     Indication: Arthritis
     Dosage: UNK, 1X/DAY (XR 11 MG)
     Route: 048

REACTIONS (3)
  - Memory impairment [Unknown]
  - Intentional product misuse [Unknown]
  - Product dose omission issue [Unknown]
